FAERS Safety Report 7511391-7 (Version None)
Quarter: 2011Q2

REPORT INFORMATION
  Report Type: 
  Country: None (occurrence: None)
  Receive Date: 20110531
  Receipt Date: 20110518
  Transmission Date: 20111010
  Serious: Yes (Other)
  Sender: FDA-Public Use
  Company Number: PHFR2010IE05971

PATIENT
  Sex: Female

DRUGS (10)
  1. MIRTAZAPINE [Concomitant]
     Indication: DEPRESSED MOOD
     Dosage: 450 MG, QD
  2. ATORVASTATIN [Concomitant]
     Indication: BLOOD CHOLESTEROL INCREASED
     Dosage: 45 MG, QD
  3. ISTIN [Concomitant]
     Indication: HYPERTENSION
     Dosage: 5 MG, QD
  4. DULOXETINE HYDROCHLORIDE [Concomitant]
     Indication: DEPRESSED MOOD
     Dosage: 120 MG, UNK
  5. TAMOXIFEN CITRATE [Concomitant]
     Dosage: 20 MG OD
  6. ANTIBIOTICS [Concomitant]
  7. ALLOPURINOL [Concomitant]
     Indication: GOUT
     Dosage: 200 MG, QD
  8. LEVOTHYROXINE SODIUM [Concomitant]
     Indication: HYPOTHYROIDISM
     Dosage: 125 MG, QD
  9. CLOZARIL [Suspect]
     Indication: SCHIZOPHRENIA
     Dosage: 200 MG, UNK
     Route: 048
     Dates: start: 20090612
  10. CLOZARIL [Suspect]
     Indication: PSYCHOTIC DISORDER

REACTIONS (4)
  - PAROTID GLAND ENLARGEMENT [None]
  - BONE SWELLING [None]
  - INFECTION [None]
  - HYPERTENSION [None]
